FAERS Safety Report 10533652 (Version 2)
Quarter: 2014Q4

REPORT INFORMATION
  Report Type: Spontaneous
  Country: DE (occurrence: DE)
  Receive Date: 20141022
  Receipt Date: 20141219
  Transmission Date: 20150529
  Serious: Yes (Other)
  Sender: FDA-Public Use
  Company Number: DE-SHIRE-DE201406933

PATIENT
  Age: 20 Year
  Sex: Male
  Weight: 60 kg

DRUGS (4)
  1. NOVORAPID [Concomitant]
     Active Substance: INSULIN ASPART
     Indication: TYPE 1 DIABETES MELLITUS
     Dosage: 35 IU, 1X/DAY:QD
     Route: 058
     Dates: start: 2005
  2. BUDENOFALK [Concomitant]
     Active Substance: BUDESONIDE
     Indication: IRRITABLE BOWEL SYNDROME
     Dosage: 1 DF, 1X/DAY:QD
     Route: 054
     Dates: start: 201403
  3. MEZAVANT [Suspect]
     Active Substance: MESALAMINE
     Indication: INFLAMMATORY BOWEL DISEASE
     Dosage: 3600 MG (1200 MG X THREE), 1X/DAY:QD
     Route: 048
     Dates: start: 201311, end: 20140916
  4. LANTUS [Concomitant]
     Active Substance: INSULIN GLARGINE
     Indication: TYPE 1 DIABETES MELLITUS
     Dosage: UNK, UNKNOWN
     Route: 058
     Dates: start: 2005

REACTIONS (9)
  - Product use issue [Recovered/Resolved]
  - Acute kidney injury [Not Recovered/Not Resolved]
  - Blood glucose fluctuation [Not Recovered/Not Resolved]
  - Abnormal loss of weight [Not Recovered/Not Resolved]
  - Nausea [Not Recovered/Not Resolved]
  - Tubulointerstitial nephritis [Not Recovered/Not Resolved]
  - Decreased appetite [Not Recovered/Not Resolved]
  - Leukocyturia [Not Recovered/Not Resolved]
  - Renal disorder [Not Recovered/Not Resolved]

NARRATIVE: CASE EVENT DATE: 201311
